FAERS Safety Report 7931083-X (Version None)
Quarter: 2011Q4

REPORT INFORMATION
  Report Type: 
  Country: None (occurrence: None)
  Receive Date: 20111121
  Receipt Date: 20111110
  Transmission Date: 20120403
  Serious: Yes (Hospitalization)
  Sender: FDA-Public Use
  Company Number: TR-COVIDIEN/TYCO HEALTHCARE/MALLINCKRODT-T201102301

PATIENT
  Age: 79 Year
  Sex: Male

DRUGS (3)
  1. METPAMID                           /00041901/ [Concomitant]
     Indication: PRODUCT USED FOR UNKNOWN INDICATION
     Dosage: UNK
  2. EXALGO [Suspect]
     Indication: PAIN
     Dosage: 8 MG, UNK
     Route: 048
     Dates: start: 20111019, end: 20111021
  3. MINOSET PLUS [Concomitant]
     Dosage: UNK

REACTIONS (3)
  - RESPIRATION ABNORMAL [None]
  - LOSS OF CONSCIOUSNESS [None]
  - SOMNOLENCE [None]
